FAERS Safety Report 4939198-5 (Version None)
Quarter: 2006Q1

REPORT INFORMATION
  Report Type: 
  Country: None (occurrence: None)
  Receive Date: 20060310
  Receipt Date: 20030724
  Transmission Date: 20060701
  Serious: Yes (Death, Hospitalization)
  Sender: FDA-Public Use
  Company Number: US-2003-BP-04992BP

PATIENT
  Age: 33 Year
  Sex: Female
  Weight: 101.15 kg

DRUGS (4)
  1. VIRAMUNE [Suspect]
     Indication: HIV INFECTION
     Route: 048
     Dates: start: 20030618, end: 20030723
  2. COMBIVIR [Suspect]
     Indication: HIV INFECTION
     Dates: start: 20030618, end: 20030723
  3. IRON [Concomitant]
  4. PRENATAL VITAMINS [Concomitant]

REACTIONS (33)
  - ALANINE AMINOTRANSFERASE INCREASED [None]
  - ASPARTATE AMINOTRANSFERASE INCREASED [None]
  - BLOOD GLUCOSE DECREASED [None]
  - BLOOD LACTIC ACID DECREASED [None]
  - CAESAREAN SECTION [None]
  - COAGULOPATHY [None]
  - DIALYSIS [None]
  - DIZZINESS [None]
  - DRUG EXPOSURE DURING PREGNANCY [None]
  - GENERAL PHYSICAL HEALTH DETERIORATION [None]
  - HEART RATE INCREASED [None]
  - HEPATIC FAILURE [None]
  - HEPATIC NECROSIS [None]
  - HEPATIC STEATOSIS [None]
  - HEPATITIS [None]
  - HEPATOTOXICITY [None]
  - HYPOTENSION [None]
  - INTERNATIONAL NORMALISED RATIO DECREASED [None]
  - MULTI-ORGAN FAILURE [None]
  - NAUSEA [None]
  - PNEUMOTHORAX [None]
  - POST PROCEDURAL HAEMORRHAGE [None]
  - PREMATURE SEPARATION OF PLACENTA [None]
  - PROCEDURAL HYPOTENSION [None]
  - PULMONARY OEDEMA [None]
  - RASH MACULO-PAPULAR [None]
  - RENAL FAILURE [None]
  - RESPIRATORY DISTRESS [None]
  - SINUS CONGESTION [None]
  - SOMNOLENCE [None]
  - TACHYPNOEA [None]
  - THIRST [None]
  - VOMITING [None]
